FAERS Safety Report 7490818-3 (Version None)
Quarter: 2011Q2

REPORT INFORMATION
  Report Type: 
  Country: None (occurrence: None)
  Receive Date: 20110519
  Receipt Date: 20110504
  Transmission Date: 20111010
  Serious: Yes (Other)
  Sender: FDA-Public Use
  Company Number: US-JNJFOC-20110503115

PATIENT
  Age: 44 Year
  Sex: Male
  Weight: 83.01 kg

DRUGS (2)
  1. ROGAINE EXTRA STRENGTH (FOR MEN) [Suspect]
     Indication: ALOPECIA
     Dosage: HALF OF CUP ONCE
     Route: 061
     Dates: start: 20110502, end: 20110502
  2. ROGAINE EXTRA STRENGTH (FOR MEN) [Suspect]
     Route: 061

REACTIONS (5)
  - APPLICATION SITE SWELLING [None]
  - RASH PUSTULAR [None]
  - APPLICATION SITE IRRITATION [None]
  - PAIN [None]
  - LOSS OF EMPLOYMENT [None]
